FAERS Safety Report 4672712-6 (Version None)
Quarter: 2005Q2

REPORT INFORMATION
  Report Type: 
  Country: None (occurrence: None)
  Receive Date: 20050524
  Receipt Date: 20050414
  Transmission Date: 20051028
  Serious: Yes (Disabling, Other)
  Sender: FDA-Public Use
  Company Number: ES-BRISTOL-MYERS SQUIBB COMPANY-12934873

PATIENT
  Age: 40 Year
  Sex: Female

DRUGS (2)
  1. REYATAZ [Suspect]
     Indication: HIV INFECTION
     Route: 048
     Dates: start: 20050308, end: 20050326
  2. COMBIVIR [Concomitant]
     Indication: HIV INFECTION
     Dosage: THERAPY INCLUDED ZIDOVUDINE 600 MG DAILY AND LAMIVUDINE 300 MG DAILY.
     Dates: start: 20050308, end: 20050326

REACTIONS (6)
  - CHOLURIA [None]
  - FLUID RETENTION [None]
  - GENERAL PHYSICAL HEALTH DETERIORATION [None]
  - HAEMATOMA [None]
  - JAUNDICE [None]
  - OEDEMA PERIPHERAL [None]
